APPROVED DRUG PRODUCT: MINOXIDIL (FOR MEN)
Active Ingredient: MINOXIDIL
Strength: 2%
Dosage Form/Route: SOLUTION;TOPICAL
Application: A074767 | Product #001
Applicant: AUROBINDO PHARMA LTD
Approved: Feb 28, 1997 | RLD: No | RS: No | Type: DISCN